FAERS Safety Report 7787015-0 (Version None)
Quarter: 2011Q3

REPORT INFORMATION
  Report Type: 
  Country: None (occurrence: None)
  Receive Date: 20110929
  Receipt Date: 20110921
  Transmission Date: 20111222
  Serious: Yes (Hospitalization)
  Sender: FDA-Public Use
  Company Number: JP-ABBOTT-11P-087-0847437-00

PATIENT
  Age: 33 Year
  Sex: Female

DRUGS (2)
  1. CLARITHROMYCIN [Suspect]
     Indication: CYSTITIS
     Route: 048
     Dates: start: 20100101
  2. CEFDINIR [Concomitant]
     Indication: CYSTITIS
     Route: 048
     Dates: start: 20100101

REACTIONS (1)
  - PSEUDOMEMBRANOUS COLITIS [None]
